FAERS Safety Report 19645829 (Version 1)
Quarter: 2021Q3

REPORT INFORMATION
  Report Type: Spontaneous
  Country: US (occurrence: US)
  Receive Date: 20210730
  Receipt Date: 20210730
  Transmission Date: 20211014
  Serious: No
  Sender: FDA-Public Use
  Company Number: None

PATIENT
  Age: 42 Year
  Sex: Female

DRUGS (1)
  1. MYCOPHENOLIC DR TAB 180MG [Suspect]
     Active Substance: MYCOPHENOLIC ACID
     Dosage: OTHER DOSE:1 TAB PO;TID ORAL?
     Route: 048
     Dates: start: 20210419

REACTIONS (3)
  - Blood pressure increased [None]
  - Eye disorder [None]
  - Headache [None]

NARRATIVE: CASE EVENT DATE: 20210726
